FAERS Safety Report 10512562 (Version 2)
Quarter: 2015Q1

REPORT INFORMATION
  Report Type: Spontaneous
  Country: GB (occurrence: GB)
  Receive Date: 20141011
  Receipt Date: 20150116
  Transmission Date: 20150720
  Serious: Yes (Death, Other)
  Sender: FDA-Public Use
  Company Number: PHFR2014GB006883

PATIENT
  Sex: Female

DRUGS (1)
  1. CLOZARIL [Suspect]
     Active Substance: CLOZAPINE
     Indication: SCHIZOPHRENIA
     Route: 048
     Dates: start: 20060403

REACTIONS (5)
  - Pulmonary embolism [Fatal]
  - Self injurious behaviour [Unknown]
  - Pulmonary oedema [Unknown]
  - Deep vein thrombosis [Fatal]
  - Left ventricular hypertrophy [Unknown]
